FAERS Safety Report 4714923-7 (Version None)
Quarter: 2005Q3

REPORT INFORMATION
  Report Type: 
  Country: None (occurrence: None)
  Receive Date: 20050715
  Receipt Date: 20050629
  Transmission Date: 20060218
  Serious: Yes (Life-Threatening)
  Sender: FDA-Public Use
  Company Number: 2005CG01182

PATIENT
  Age: 27034 Day
  Sex: Female
  Weight: 75 kg

DRUGS (14)
  1. NAROPIN [Suspect]
     Indication: LOCAL ANAESTHESIA
     Route: 053
     Dates: start: 20050620, end: 20050620
  2. NAROPIN [Suspect]
     Indication: POSTOPERATIVE ANALGESIA
     Route: 053
     Dates: start: 20050620, end: 20050620
  3. NAROPIN [Suspect]
     Route: 053
     Dates: start: 20050620, end: 20050620
  4. NAROPIN [Suspect]
     Route: 053
     Dates: start: 20050620, end: 20050620
  5. NAROPIN [Suspect]
     Route: 053
     Dates: start: 20050620, end: 20050621
  6. NAROPIN [Suspect]
     Route: 053
     Dates: start: 20050620, end: 20050621
  7. CARBOCAINE [Concomitant]
     Indication: LOCAL ANAESTHESIA
     Route: 053
     Dates: start: 20050620, end: 20050620
  8. CARBOCAINE [Concomitant]
     Route: 053
     Dates: start: 20050620, end: 20050620
  9. DIPRIVAN [Concomitant]
     Indication: GENERAL ANAESTHESIA
     Route: 042
     Dates: start: 20050620, end: 20050620
  10. CATAPRES [Concomitant]
     Indication: LOCAL ANAESTHESIA
     Route: 053
     Dates: start: 20050620, end: 20050620
  11. CATAPRES [Concomitant]
     Route: 053
     Dates: start: 20050620, end: 20050620
  12. TRACRIUM [Concomitant]
     Indication: GENERAL ANAESTHESIA
     Route: 042
     Dates: start: 20050620, end: 20050620
  13. SUFENTANIL [Concomitant]
     Indication: GENERAL ANAESTHESIA
     Route: 042
     Dates: start: 20050620, end: 20050620
  14. SEVORANE [Concomitant]
     Indication: GENERAL ANAESTHESIA
     Route: 055
     Dates: start: 20050620, end: 20050620

REACTIONS (3)
  - COMA [None]
  - EPILEPSY [None]
  - POST PROCEDURAL COMPLICATION [None]
